FAERS Safety Report 16929201 (Version 1)
Quarter: 2019Q4

REPORT INFORMATION
  Report Type: Spontaneous
  Country: US (occurrence: US)
  Receive Date: 20191016
  Receipt Date: 20191016
  Transmission Date: 20200122
  Serious: Yes (Life-Threatening, Hospitalization)
  Sender: FDA-Public Use
  Company Number: None

PATIENT
  Age: 22 Year
  Sex: Female
  Weight: 54 kg

DRUGS (2)
  1. BACTRIM [Suspect]
     Active Substance: SULFAMETHOXAZOLE\TRIMETHOPRIM
     Indication: CELLULITIS
     Route: 048
  2. SILVER SULFADIAZINE 1% TOPICAL CREAM [Concomitant]

REACTIONS (4)
  - Pancytopenia [None]
  - Fibrin D dimer increased [None]
  - Tachycardia [None]
  - Rash [None]

NARRATIVE: CASE EVENT DATE: 20191014
